FAERS Safety Report 17638268 (Version 2)
Quarter: 2020Q2

REPORT INFORMATION
  Report Type: Report from Study
  Country: US (occurrence: US)
  Receive Date: 20200407
  Receipt Date: 20200515
  Transmission Date: 20200713
  Serious: Yes (Death)
  Sender: FDA-Public Use
  Company Number: US-ACTELION-A-US2019-191921

PATIENT
  Sex: Male

DRUGS (8)
  1. UPTRAVI [Suspect]
     Active Substance: SELEXIPAG
     Dosage: 800 MCG, BID
     Route: 048
     Dates: start: 20190517
  2. OXYGEN. [Concomitant]
     Active Substance: OXYGEN
     Dosage: 6 L, PER MIN, 24 HOURS DAILY VIA NASAL CANULA
     Dates: start: 20190408
  3. ADCIRCA [Concomitant]
     Active Substance: TADALAFIL
     Dosage: 20 MG 2 BY MOUTH EVERYDAY AND ONE IN LATE AFTERNOON
     Route: 048
     Dates: start: 20190916
  4. UPTRAVI [Suspect]
     Active Substance: SELEXIPAG
     Indication: PULMONARY ARTERIAL HYPERTENSION
     Dosage: 1600 MCG, BID
     Route: 048
     Dates: start: 20190408, end: 20200213
  5. ESBRIET [Concomitant]
     Active Substance: PIRFENIDONE
     Dosage: 267 MG, TID
     Dates: start: 20160829
  6. UPTRAVI [Suspect]
     Active Substance: SELEXIPAG
     Dosage: 1200 MCG, BID
     Route: 048
  7. OXYGEN. [Concomitant]
     Active Substance: OXYGEN
     Dosage: 10 L
  8. TRAZODONE [Concomitant]
     Active Substance: TRAZODONE HYDROCHLORIDE
     Dosage: 100 MG 2 BY MOUTH AT BEDTIME
     Route: 048
     Dates: start: 20190923

REACTIONS (9)
  - Pain in extremity [Unknown]
  - Decreased appetite [Unknown]
  - Dependence on oxygen therapy [Unknown]
  - Headache [Unknown]
  - Condition aggravated [Unknown]
  - Idiopathic pulmonary fibrosis [Fatal]
  - Pulmonary arterial hypertension [Fatal]
  - Dyspnoea [Unknown]
  - Weight decreased [Unknown]
